FAERS Safety Report 8271947-3 (Version None)
Quarter: 2012Q2

REPORT INFORMATION
  Report Type: 
  Country: None (occurrence: None)
  Receive Date: 20120410
  Receipt Date: 20120330
  Transmission Date: 20120825
  Serious: Yes (Death, Hospitalization)
  Sender: FDA-Public Use
  Company Number: US-ACTELION-A-US2012-63078

PATIENT

DRUGS (3)
  1. TRACLEER [Suspect]
     Indication: PULMONARY ARTERIAL HYPERTENSION
     Dosage: 125
     Route: 048
     Dates: start: 20110607, end: 20120201
  2. REVATIO [Concomitant]
  3. CALCIUM CHANNEL BLOCKERS [Concomitant]

REACTIONS (11)
  - DEATH [None]
  - CHEST DISCOMFORT [None]
  - VENTRICULAR TACHYCARDIA [None]
  - CORONARY ARTERY OCCLUSION [None]
  - RASH [None]
  - ELECTROLYTE IMBALANCE [None]
  - MYOCARDIAL INFARCTION [None]
  - CORONARY ANGIOPLASTY [None]
  - CATHETERISATION CARDIAC [None]
  - RESPIRATORY DISTRESS [None]
  - HYPOXIA [None]
